FAERS Safety Report 15471081 (Version 1)
Quarter: 2018Q4

REPORT INFORMATION
  Report Type: Spontaneous
  Country: US (occurrence: US)
  Receive Date: 20181006
  Receipt Date: 20181006
  Transmission Date: 20190205
  Serious: Yes (Other)
  Sender: FDA-Public Use
  Company Number: US-TEVA-2018-US-961069

PATIENT
  Age: 60 Year
  Sex: Female

DRUGS (3)
  1. LIDOCAINE. [Suspect]
     Active Substance: LIDOCAINE
     Indication: BACK PAIN
     Route: 065
  2. LIDOCAINE. [Suspect]
     Active Substance: LIDOCAINE
     Indication: NEURALGIA
  3. LIDOCAINE. [Suspect]
     Active Substance: LIDOCAINE
     Indication: SCIATICA

REACTIONS (2)
  - Road traffic accident [Unknown]
  - Drug screen positive [Unknown]
